FAERS Safety Report 16296294 (Version 1)
Quarter: 2019Q2

REPORT INFORMATION
  Report Type: Spontaneous
  Country: US (occurrence: US)
  Receive Date: 20190404
  Receipt Date: 20190404
  Transmission Date: 20190711
  Serious: Yes (Other)
  Sender: FDA-Public Use
  Company Number: None

PATIENT
  Age: 61 Year
  Sex: Female
  Weight: 117.93 kg

DRUGS (3)
  1. VALSARTAN AND HYDROCHLOROTHIAZIDE [Suspect]
     Active Substance: HYDROCHLOROTHIAZIDE\VALSARTAN
     Indication: FLUID RETENTION
     Dates: start: 20140305, end: 20180903
  2. VALSARTAN-HCTZ 320-25MG TAB [Suspect]
     Active Substance: HYDROCHLOROTHIAZIDE\VALSARTAN
     Indication: FLUID RETENTION
     Route: 048
     Dates: start: 20140305, end: 20180705
  3. HYDROCHLOROTHIAZIDE 25MG TAB [Suspect]
     Active Substance: HYDROCHLOROTHIAZIDE
     Indication: FLUID RETENTION
     Route: 048
     Dates: start: 20140305, end: 20180903

REACTIONS (19)
  - Thinking abnormal [None]
  - Blood glucose increased [None]
  - Myalgia [None]
  - Dysphonia [None]
  - Blood pressure increased [None]
  - Wheezing [None]
  - Somnolence [None]
  - Cough [None]
  - Fluid retention [None]
  - Epistaxis [None]
  - Fatigue [None]
  - Weight increased [None]
  - Sinus operation [None]
  - Hunger [None]
  - Throat tightness [None]
  - Thirst [None]
  - Visual impairment [None]
  - Tooth disorder [None]
  - Dry eye [None]

NARRATIVE: CASE EVENT DATE: 20140305
